FAERS Safety Report 4623513-6 (Version None)
Quarter: 2005Q1

REPORT INFORMATION
  Report Type: 
  Country: None (occurrence: None)
  Receive Date: 20050330
  Receipt Date: 20050314
  Transmission Date: 20050727
  Serious: Yes (Other)
  Sender: FDA-Public Use
  Company Number: HQWYE512610DEC03

PATIENT
  Age: 9 Month
  Sex: Male
  Weight: 11 kg

DRUGS (2)
  1. REFACTO [Suspect]
     Indication: PROPHYLAXIS
     Dosage: SEE IMAGE
     Route: 042
     Dates: start: 20030101
  2. REFACTO [Suspect]

REACTIONS (3)
  - COAGULATION FACTOR VIII LEVEL DECREASED [None]
  - HAEMATOMA [None]
  - INFUSION SITE BRUISING [None]
